FAERS Safety Report 12132983 (Version 1)
Quarter: 2016Q1

REPORT INFORMATION
  Report Type: Spontaneous
  Country: MY (occurrence: MY)
  Receive Date: 20160301
  Receipt Date: 20160301
  Transmission Date: 20160526
  Serious: Yes (Other)
  Sender: FDA-Public Use
  Company Number: MY-IPCA LABORATORIES LIMITED-IPC201602-000288

PATIENT
  Age: 33 Year
  Sex: Female

DRUGS (7)
  1. FENOFIBRATE. [Concomitant]
     Active Substance: FENOFIBRATE
  2. ALLOPURINOL. [Suspect]
     Active Substance: ALLOPURINOL
     Indication: GOUT
  3. ALLOPURINOL. [Suspect]
     Active Substance: ALLOPURINOL
  4. ALLOPURINOL. [Suspect]
     Active Substance: ALLOPURINOL
  5. METFORMIN [Concomitant]
     Active Substance: METFORMIN HYDROCHLORIDE
  6. GLICLAZIDE MR [Concomitant]
     Active Substance: GLICLAZIDE
  7. ASCORBIC ACID. [Concomitant]
     Active Substance: ASCORBIC ACID

REACTIONS (1)
  - Maculopathy [Not Recovered/Not Resolved]
